FAERS Safety Report 6922470-7 (Version None)
Quarter: 2010Q3

REPORT INFORMATION
  Report Type: 
  Country: None (occurrence: None)
  Receive Date: 20100813
  Receipt Date: 20100729
  Transmission Date: 20110219
  Serious: Yes (Other)
  Sender: FDA-Public Use
  Company Number: US-BAYER-201020306NA

PATIENT
  Age: 72 Year
  Sex: Female
  Weight: 111 kg

DRUGS (25)
  1. MAGNEVIST [Suspect]
     Indication: ANGIOGRAM
     Dates: start: 20050830, end: 20050830
  2. OMNISCAN [Suspect]
     Indication: PRODUCT USED FOR UNKNOWN INDICATION
  3. OPTIMARK [Suspect]
     Indication: PRODUCT USED FOR UNKNOWN INDICATION
  4. MULTIHANCE [Suspect]
     Indication: PRODUCT USED FOR UNKNOWN INDICATION
  5. PROHANCE [Suspect]
     Indication: PRODUCT USED FOR UNKNOWN INDICATION
  6. PLAVIX [Concomitant]
  7. FUROSEMIDE [Concomitant]
  8. LISINOPRIL [Concomitant]
  9. METOPROLOL TARTRATE [Concomitant]
  10. LIPITOR [Concomitant]
  11. CELEXA [Concomitant]
  12. ASPIRIN [Concomitant]
  13. GLYBURIDE [Concomitant]
  14. ACTOS [Concomitant]
  15. LEVOTHYROXINE [Concomitant]
  16. CALCIUM [Concomitant]
  17. HYDRALAZINE HCL [Concomitant]
  18. NORVASC [Concomitant]
  19. GLUCOPHAGE [Concomitant]
  20. ATENOLOL [Concomitant]
  21. REDUX [Concomitant]
  22. HEXALEN [Concomitant]
  23. ALLOPURINOL [Concomitant]
  24. VASOTEC [Concomitant]
  25. INDOMETHACIN [Concomitant]

REACTIONS (14)
  - ERYTHEMA [None]
  - JOINT STIFFNESS [None]
  - MOBILITY DECREASED [None]
  - MUSCULOSKELETAL STIFFNESS [None]
  - NEPHROGENIC SYSTEMIC FIBROSIS [None]
  - OEDEMA PERIPHERAL [None]
  - PAIN [None]
  - PAIN IN EXTREMITY [None]
  - PEAU D'ORANGE [None]
  - RASH MACULO-PAPULAR [None]
  - RASH PRURITIC [None]
  - SKIN HYPERTROPHY [None]
  - SKIN TIGHTNESS [None]
  - SKIN ULCER [None]
